FAERS Safety Report 20847164 (Version 2)
Quarter: 2022Q3

REPORT INFORMATION
  Report Type: Spontaneous
  Country: BR (occurrence: BR)
  Receive Date: 20220519
  Receipt Date: 20220711
  Transmission Date: 20221027
  Serious: Yes (Other)
  Sender: FDA-Public Use
  Company Number: BR-NOVOPROD-917584

PATIENT
  Age: 43 Year
  Sex: Male
  Weight: 112 kg

DRUGS (2)
  1. INSULIN HUMAN [Suspect]
     Active Substance: INSULIN HUMAN
     Indication: Type 2 diabetes mellitus
     Dosage: 20 U/EARLY + 6 U AT BEDTIME, IRREGULARLY
     Route: 065
  2. DAPAGLIFLOZIN;METFORMIN HYDROCHLORIDE [Concomitant]
     Indication: Product used for unknown indication
     Dosage: 5/1000 1-0-1
     Route: 065

REACTIONS (3)
  - Metabolic syndrome [Recovered/Resolved]
  - Diabetic metabolic decompensation [Recovered/Resolved]
  - Treatment noncompliance [Recovered/Resolved]
